FAERS Safety Report 4740332-0 (Version None)
Quarter: 2005Q3

REPORT INFORMATION
  Report Type: 
  Country: None (occurrence: None)
  Receive Date: 20050810
  Receipt Date: 20050728
  Transmission Date: 20060218
  Serious: Yes (Hospitalization)
  Sender: FDA-Public Use
  Company Number: FR-JNJFOC-20050705830

PATIENT
  Age: 70 Year
  Sex: Male

DRUGS (11)
  1. DURAGESIC-100 [Suspect]
     Route: 062
  2. DURAGESIC-100 [Suspect]
     Indication: CANCER PAIN
     Route: 062
  3. LAROXYL [Suspect]
     Route: 048
  4. LAROXYL [Suspect]
     Indication: DRUG USE FOR UNKNOWN INDICATION
     Route: 048
  5. NITRODERM [Concomitant]
     Route: 065
  6. ACETAMINOPHEN [Concomitant]
     Route: 065
  7. LANSOYL [Concomitant]
     Route: 065
  8. MOVICOL [Concomitant]
     Route: 065
  9. MOVICOL [Concomitant]
     Route: 065
  10. MOVICOL [Concomitant]
     Route: 065
  11. MOVICOL [Concomitant]
     Route: 065

REACTIONS (6)
  - ASTHENIA [None]
  - CONFUSIONAL STATE [None]
  - MALAISE [None]
  - MEDICATION ERROR [None]
  - ORTHOSTATIC HYPOTENSION [None]
  - SOMNOLENCE [None]
